FAERS Safety Report 7392741-1 (Version None)
Quarter: 2011Q2

REPORT INFORMATION
  Report Type: 
  Country: None (occurrence: None)
  Receive Date: 20110404
  Receipt Date: 20110322
  Transmission Date: 20111010
  Serious: Yes (Other)
  Sender: FDA-Public Use
  Company Number: US-ELI_LILLY_AND_COMPANY-US201101003506

PATIENT
  Age: 50 Year
  Sex: Male
  Weight: 90.703 kg

DRUGS (3)
  1. HEPARIN SODIUM [Concomitant]
     Dosage: UNK, UNKNOWN
     Route: 065
  2. EFFIENT [Suspect]
     Indication: STENT PLACEMENT
     Dosage: 60 MG, UNK
     Route: 050
  3. ANGIOMAX [Concomitant]

REACTIONS (1)
  - THROMBOSIS IN DEVICE [None]
